FAERS Safety Report 8999264 (Version 1)
Quarter: 2013Q1

REPORT INFORMATION
  Report Type: Spontaneous
  Country: FR (occurrence: FR)
  Receive Date: 20130103
  Receipt Date: 20130103
  Transmission Date: 20140127
  Serious: Yes (Life-Threatening, Hospitalization)
  Sender: FDA-Public Use
  Company Number: FR-SANOFI-AVENTIS-2012SA095924

PATIENT
  Age: 31 Year
  Sex: Female

DRUGS (7)
  1. TAXOTERE [Suspect]
     Indication: BREAST CANCER
     Route: 042
     Dates: start: 20120912
  2. NORVIR [Interacting]
     Indication: HIV INFECTION
     Route: 048
     Dates: start: 201012
  3. ATAZANAVIR [Interacting]
     Indication: HIV INFECTION
     Route: 048
     Dates: start: 201012
  4. EMTRICITABINE/TENOFOVIR DISOPROXIL FUMARATE [Concomitant]
     Indication: HIV INFECTION
     Dosage: 200MG/245MG
     Route: 048
     Dates: start: 201012
  5. IMOVANE [Concomitant]
     Route: 048
     Dates: start: 20120912
  6. EUPANTOL [Concomitant]
     Dates: start: 20120912
  7. DAFALGAN CODEINE [Concomitant]
     Dosage: 500MG/30MG
     Route: 048
     Dates: start: 20120912

REACTIONS (4)
  - Rash generalised [Recovering/Resolving]
  - Drug interaction [Recovering/Resolving]
  - Skin exfoliation [Recovering/Resolving]
  - Aplasia [Recovering/Resolving]
